FAERS Safety Report 7444842-7 (Version None)
Quarter: 2011Q2

REPORT INFORMATION
  Report Type: 
  Country: None (occurrence: None)
  Receive Date: 20110429
  Receipt Date: 20101006
  Transmission Date: 20111010
  Serious: Yes (Life-Threatening)
  Sender: FDA-Public Use
  Company Number: FR-PFIZER INC-2011090481

PATIENT
  Age: 10 Year
  Sex: Male

DRUGS (2)
  1. SOMATROPIN [Suspect]
     Indication: SMALL FOR DATES BABY
     Dosage: UNK
     Dates: start: 20051205
  2. SOMATROPIN [Suspect]
     Indication: FOETAL GROWTH RESTRICTION

REACTIONS (1)
  - INSULIN-LIKE GROWTH FACTOR INCREASED [None]
